FAERS Safety Report 14936030 (Version 2)
Quarter: 2018Q3

REPORT INFORMATION
  Report Type: Spontaneous
  Country: CH (occurrence: CH)
  Receive Date: 20180524
  Receipt Date: 20180706
  Transmission Date: 20181010
  Serious: Yes (Other)
  Sender: FDA-Public Use
  Company Number: CH-REGENERON PHARMACEUTICALS, INC.-2018-24708

PATIENT

DRUGS (4)
  1. OFLOXACIN. [Concomitant]
     Active Substance: OFLOXACIN
     Indication: PRODUCT USED FOR UNKNOWN INDICATION
     Dosage: UNK UNK, TID
  2. EYLEA [Suspect]
     Active Substance: AFLIBERCEPT
     Indication: PRODUCT USED FOR UNKNOWN INDICATION
     Dosage: 4 TIMES IN LAST 6 MONTHS
     Route: 031
     Dates: start: 20171003, end: 20171003
  3. BRAUNOL [Concomitant]
     Active Substance: POVIDONE-IODINE
     Indication: PRODUCT USED FOR UNKNOWN INDICATION
     Dosage: UNK
  4. BRAUNOL [Concomitant]
     Active Substance: POVIDONE-IODINE
     Dosage: UNK

REACTIONS (3)
  - Blindness [Unknown]
  - Non-infectious endophthalmitis [Unknown]
  - Intraocular pressure decreased [Unknown]
